FAERS Safety Report 10048310 (Version 2)
Quarter: 2014Q2

REPORT INFORMATION
  Report Type: Spontaneous
  Country: US (occurrence: US)
  Receive Date: 20140331
  Receipt Date: 20140610
  Transmission Date: 20141212
  Serious: Yes (Hospitalization)
  Sender: FDA-Public Use
  Company Number: US-GLAXOSMITHKLINE-A1066103A

PATIENT
  Age: 68 Year
  Sex: Male

DRUGS (7)
  1. ADVAIR [Suspect]
     Indication: CHRONIC OBSTRUCTIVE PULMONARY DISEASE
     Dosage: 1PUFF TWICE PER DAY
     Route: 055
     Dates: start: 2002
  2. SPIRIVA [Concomitant]
  3. INSULIN [Concomitant]
  4. CHOLESTEROL REDUCING AGENT [Concomitant]
  5. BLOOD PRESSURE MEDICATION [Concomitant]
  6. MELATONIN [Concomitant]
  7. UNKNOWN [Concomitant]

REACTIONS (9)
  - Lung neoplasm malignant [Recovered/Resolved]
  - Pulmonary fibrosis [Not Recovered/Not Resolved]
  - Chronic obstructive pulmonary disease [Not Recovered/Not Resolved]
  - Dementia Alzheimer^s type [Not Recovered/Not Resolved]
  - Dementia [Not Recovered/Not Resolved]
  - Wheezing [Not Recovered/Not Resolved]
  - Cough [Not Recovered/Not Resolved]
  - Dyspnoea [Not Recovered/Not Resolved]
  - Cognitive disorder [Not Recovered/Not Resolved]
